FAERS Safety Report 8119747-9 (Version None)
Quarter: 2012Q1

REPORT INFORMATION
  Report Type: 
  Country: None (occurrence: None)
  Receive Date: 20120207
  Receipt Date: 20120131
  Transmission Date: 20120608
  Serious: Yes (Other)
  Sender: FDA-Public Use
  Company Number: US-PFIZER INC-2009167126

PATIENT
  Weight: 77.098 kg

DRUGS (3)
  1. CADUET [Suspect]
     Dosage: (10/40 T DAILY)
     Route: 048
     Dates: start: 20040101
  2. PREVACID [Concomitant]
     Dosage: UNK
  3. AMITRIPTYLINE [Concomitant]
     Dosage: UNK

REACTIONS (15)
  - HEPATIC STEATOSIS [None]
  - HIP ARTHROPLASTY [None]
  - MOLE EXCISION [None]
  - ANOGENITAL WARTS [None]
  - RESPIRATORY DISORDER [None]
  - TYPE 2 DIABETES MELLITUS [None]
  - CORONARY ARTERY DISEASE [None]
  - STENT PLACEMENT [None]
  - HELICOBACTER GASTRITIS [None]
  - BENIGN NEOPLASM [None]
  - POLYPECTOMY [None]
  - SPINAL COLUMN STENOSIS [None]
  - BENIGN NEOPLASM OF BLADDER [None]
  - NEPHROLITHIASIS [None]
  - LIMB INJURY [None]
